FAERS Safety Report 13344226 (Version 1)
Quarter: 2017Q1

REPORT INFORMATION
  Report Type: Spontaneous
  Country: US (occurrence: US)
  Receive Date: 20170316
  Receipt Date: 20170316
  Transmission Date: 20170428
  Serious: No
  Sender: FDA-Public Use
  Company Number: US-AMGEN-USASP2017036745

PATIENT
  Age: 58 Year
  Sex: Female

DRUGS (2)
  1. CELEBREX [Suspect]
     Active Substance: CELECOXIB
     Indication: PAIN IN EXTREMITY
     Dosage: UNK
     Route: 065
     Dates: start: 2017
  2. ENBREL [Suspect]
     Active Substance: ETANERCEPT
     Indication: RHEUMATOID ARTHRITIS
     Dosage: 50 MG, QWK
     Route: 065
     Dates: start: 20170217

REACTIONS (7)
  - Abdominal discomfort [Unknown]
  - Nausea [Unknown]
  - Limb discomfort [Unknown]
  - Pain in extremity [Unknown]
  - Influenza [Unknown]
  - Insomnia [Unknown]
  - Arthropathy [Unknown]

NARRATIVE: CASE EVENT DATE: 2017
